FAERS Safety Report 23835373 (Version 1)
Quarter: 2024Q2

REPORT INFORMATION
  Report Type: Spontaneous
  Country: FR (occurrence: FR)
  Receive Date: 20240509
  Receipt Date: 20240509
  Transmission Date: 20240716
  Serious: Yes (Other)
  Sender: FDA-Public Use
  Company Number: FR-SUN PHARMACEUTICAL INDUSTRIES LTD-2024RR-445196

PATIENT
  Age: 66 Year
  Sex: Female
  Weight: 55 kg

DRUGS (5)
  1. PANTOPRAZOLE [Suspect]
     Active Substance: PANTOPRAZOLE
     Indication: Prophylaxis against gastrointestinal ulcer
     Dosage: 40 MILLIGRAM, DAILY
     Route: 040
     Dates: start: 20231206, end: 20240103
  2. IOBITRIDOL [Suspect]
     Active Substance: IOBITRIDOL
     Indication: Computerised tomogram
     Dosage: 1 DOSAGE FORM, IN TOTAL
     Route: 040
     Dates: start: 20231229, end: 20231229
  3. IOBITRIDOL [Suspect]
     Active Substance: IOBITRIDOL
     Dosage: 1 DOSAGE FORM, TOTAL 1
     Route: 065
     Dates: start: 20231220, end: 20231220
  4. IOBITRIDOL [Suspect]
     Active Substance: IOBITRIDOL
     Dosage: 1 DOSAGE FORM, TOTAL 1
     Route: 065
     Dates: start: 20231227, end: 20231227
  5. AMOXICILLIN [Suspect]
     Active Substance: AMOXICILLIN
     Indication: Intervertebral discitis
     Dosage: 6 GRAM, DAILY
     Route: 040
     Dates: start: 20231202, end: 20240103

REACTIONS (3)
  - Acute kidney injury [Recovered/Resolved]
  - Eosinophilia [Recovered/Resolved]
  - Rash macular [Recovering/Resolving]

NARRATIVE: CASE EVENT DATE: 20231228
